FAERS Safety Report 6222697-6 (Version None)
Quarter: 2009Q2

REPORT INFORMATION
  Report Type: 
  Country: None (occurrence: None)
  Receive Date: 20090611
  Receipt Date: 20090608
  Transmission Date: 20091009
  Serious: Yes (Other)
  Sender: FDA-Public Use
  Company Number: B0573171A

PATIENT
  Sex: Female
  Weight: 96.6 kg

DRUGS (5)
  1. ALLI [Suspect]
     Indication: WEIGHT DECREASED
     Dosage: 60MG THREE TIMES PER DAY
     Route: 065
  2. LEXAPRO [Concomitant]
     Dosage: 20MG PER DAY
  3. VALIUM [Concomitant]
     Dosage: 5MG AS REQUIRED
  4. UNKNOWN [Concomitant]
     Dosage: 15MG AS REQUIRED
  5. UNKNOWN [Concomitant]
     Dosage: 7.5MG AS REQUIRED

REACTIONS (1)
  - RECTAL HAEMORRHAGE [None]
